FAERS Safety Report 23473970 (Version 1)
Quarter: 2024Q1

REPORT INFORMATION
  Report Type: Other
  Country: CA (occurrence: None)
  Receive Date: 20240203
  Receipt Date: 20240203
  Transmission Date: 20240410
  Serious: No
  Sender: FDA-Public Use
  Company Number: CA-ROCHE-2846801

PATIENT
  Age: 51 Year
  Sex: Male

DRUGS (5)
  1. OCREVUS [Suspect]
     Active Substance: OCRELIZUMAB
     Indication: Relapsing-remitting multiple sclerosis
     Dosage: THEN 600 MG EVERY 6 MONTH
     Route: 042
     Dates: start: 20200414
  2. BENADRYL [Suspect]
     Active Substance: DIPHENHYDRAMINE HYDROCHLORIDE
     Indication: Product used for unknown indication
     Route: 065
  3. PREGABALIN [Suspect]
     Active Substance: PREGABALIN
     Indication: Product used for unknown indication
     Route: 065
  4. ASPIRIN [Concomitant]
     Active Substance: ASPIRIN
  5. TYLENOL [Concomitant]
     Active Substance: ACETAMINOPHEN

REACTIONS (14)
  - Ear infection [Recovered/Resolved]
  - Ligament sprain [Not Recovered/Not Resolved]
  - Headache [Recovered/Resolved]
  - Heat stroke [Recovered/Resolved]
  - Confusional state [Recovered/Resolved]
  - Dizziness [Recovered/Resolved]
  - Head discomfort [Recovered/Resolved]
  - Peripheral swelling [Unknown]
  - Skin plaque [Recovering/Resolving]
  - Photopsia [Recovered/Resolved]
  - Back pain [Unknown]
  - Fatigue [Recovered/Resolved]
  - Snoring [Unknown]
  - COVID-19 [Unknown]

NARRATIVE: CASE EVENT DATE: 20210616
